FAERS Safety Report 7123624-X (Version None)
Quarter: 2010Q4

REPORT INFORMATION
  Report Type: 
  Country: None (occurrence: None)
  Receive Date: 20101125
  Receipt Date: 20101115
  Transmission Date: 20110411
  Serious: Yes (Other)
  Sender: FDA-Public Use
  Company Number: US-SANOFI-AVENTIS-2010SA043841

PATIENT
  Age: 55 Year
  Sex: Male
  Weight: 105 kg

DRUGS (7)
  1. MULTAQ [Suspect]
     Indication: ATRIAL FIBRILLATION
     Route: 048
     Dates: start: 20100503
  2. COUMADIN [Suspect]
     Route: 048
  3. ASPIRIN [Concomitant]
     Route: 048
  4. TOPROL-XL [Concomitant]
     Route: 048
  5. VASOTEC [Concomitant]
     Route: 048
  6. SIMVASTATIN [Concomitant]
     Route: 048
  7. GLYCERYL TRINITRATE [Concomitant]
     Dosage: 1/150

REACTIONS (1)
  - INTERNATIONAL NORMALISED RATIO INCREASED [None]
